FAERS Safety Report 10230454 (Version 1)
Quarter: 2014Q2

REPORT INFORMATION
  Report Type: Spontaneous
  Country: US (occurrence: US)
  Receive Date: 20140611
  Receipt Date: 20140611
  Transmission Date: 20141212
  Serious: No
  Sender: FDA-Public Use
  Company Number: US-009507513-1406USA004606

PATIENT
  Age: 43 Year
  Sex: Female

DRUGS (2)
  1. DULERA [Suspect]
     Indication: ASTHMA
     Dosage: TWO PUFFS TWICE DAILY
     Route: 048
     Dates: start: 201308
  2. PROAIR (ALBUTEROL SULFATE) [Concomitant]
     Dosage: UNK

REACTIONS (2)
  - Underdose [Unknown]
  - Product quality issue [Unknown]
